FAERS Safety Report 6632163-1 (Version None)
Quarter: 2010Q1

REPORT INFORMATION
  Report Type: 
  Country: None (occurrence: None)
  Receive Date: 20100310
  Receipt Date: 20100224
  Transmission Date: 20100710
  Serious: Yes (Other)
  Sender: FDA-Public Use
  Company Number: 238648K09USA

PATIENT
  Age: 39 Year
  Sex: Female
  Weight: 56 kg

DRUGS (7)
  1. REBIF [Suspect]
     Indication: MULTIPLE SCLEROSIS
     Dosage: 22 MCG, 3 IN 1 WEEKS, SUBCUTANEOUS; 8.8 MCG, 22 MCG, SUBCUTANEOUS
     Route: 058
     Dates: start: 20090601, end: 20090101
  2. REBIF [Suspect]
     Indication: MULTIPLE SCLEROSIS
     Dosage: 22 MCG, 3 IN 1 WEEKS, SUBCUTANEOUS; 8.8 MCG, 22 MCG, SUBCUTANEOUS
     Route: 058
     Dates: start: 20061103, end: 20090401
  3. REBIF [Suspect]
     Indication: MULTIPLE SCLEROSIS
     Dosage: 22 MCG, 3 IN 1 WEEKS, SUBCUTANEOUS; 8.8 MCG, 22 MCG, SUBCUTANEOUS
     Route: 058
     Dates: start: 20090101
  4. REBIF [Suspect]
     Indication: MULTIPLE SCLEROSIS
     Dosage: 22 MCG, 3 IN 1 WEEKS, SUBCUTANEOUS; 8.8 MCG, 22 MCG, SUBCUTANEOUS
     Route: 058
     Dates: start: 20090101
  5. TRAMADOL HCL [Suspect]
     Indication: PAIN
     Dates: start: 20090401
  6. UNSPECIFIED PREMEDICATION (ALL OTHER THERAPEUTIC PRODUCTS) [Concomitant]
  7. CYMBALTA [Concomitant]

REACTIONS (3)
  - FATIGUE [None]
  - INJECTION SITE ERYTHEMA [None]
  - PAIN [None]
